FAERS Safety Report 4917962-6 (Version None)
Quarter: 2006Q1

REPORT INFORMATION
  Report Type: 
  Country: None (occurrence: None)
  Receive Date: 20060221
  Receipt Date: 20051013
  Transmission Date: 20060701
  Serious: Yes (Hospitalization, Other)
  Sender: FDA-Public Use
  Company Number: US-MERCK-0510USA07416

PATIENT
  Age: 68 Year
  Sex: Male
  Weight: 55 kg

DRUGS (7)
  1. VIOXX [Suspect]
     Indication: PAIN
     Route: 048
     Dates: start: 20000201, end: 20040801
  2. VIOXX [Suspect]
     Indication: ARTHRITIS
     Route: 048
     Dates: start: 20000201, end: 20040801
  3. ASPIRIN [Concomitant]
     Route: 065
  4. ECOTRIN [Concomitant]
     Route: 065
     Dates: start: 20031001, end: 20031201
  5. ULTRACET [Concomitant]
     Route: 065
     Dates: start: 20021001, end: 20021201
  6. CELEBREX [Concomitant]
     Route: 065
     Dates: start: 20000201, end: 20030201
  7. PREDNISONE [Concomitant]
     Route: 065

REACTIONS (18)
  - ANAEMIA [None]
  - ARTERIOSCLEROSIS [None]
  - BLOOD CHOLESTEROL INCREASED [None]
  - BLOOD TRIGLYCERIDES INCREASED [None]
  - CEREBROVASCULAR ACCIDENT [None]
  - CHEST PAIN [None]
  - CONVULSION [None]
  - CORONARY ARTERY DISEASE [None]
  - FUNGAL INFECTION [None]
  - GASTRIC ULCER [None]
  - GASTROOESOPHAGEAL REFLUX DISEASE [None]
  - HYPERTENSION [None]
  - INFECTION [None]
  - MUSCLE DISORDER [None]
  - MYOCARDIAL INFARCTION [None]
  - PROSTATE EXAMINATION ABNORMAL [None]
  - SLEEP DISORDER [None]
  - URINARY TRACT INFECTION [None]
